FAERS Safety Report 23450720 (Version 1)
Quarter: 2024Q1

REPORT INFORMATION
  Report Type: Spontaneous
  Country: US (occurrence: US)
  Receive Date: 20240129
  Receipt Date: 20240129
  Transmission Date: 20240409
  Serious: Yes (Hospitalization, Other)
  Sender: FDA-Public Use
  Company Number: US-EPICPHARMA-US-2024EPCLIT00185

PATIENT
  Age: 59 Year
  Sex: Male
  Weight: 113.4 kg

DRUGS (1)
  1. LIDOCAINE HYDROCHLORIDE [Suspect]
     Active Substance: LIDOCAINE HYDROCHLORIDE
     Indication: Epidural anaesthesia
     Route: 008

REACTIONS (1)
  - Cauda equina syndrome [Not Recovered/Not Resolved]
